FAERS Safety Report 5969591-3 (Version None)
Quarter: 2008Q4

REPORT INFORMATION
  Report Type: 
  Country: None (occurrence: None)
  Receive Date: 20081126
  Receipt Date: 20081121
  Transmission Date: 20090506
  Serious: Yes (Hospitalization)
  Sender: FDA-Public Use
  Company Number: CH-GENENTECH-272404

PATIENT
  Sex: Male

DRUGS (6)
  1. BEVACIZUMAB [Suspect]
     Indication: COLORECTAL CANCER
     Dosage: 7.5 MG/KG, UNK
     Route: 042
     Dates: start: 20080623
  2. CETUXIMAB [Suspect]
     Indication: COLORECTAL CANCER
     Dosage: 250 MG/M2, 1/WEEK
     Route: 042
     Dates: start: 20080623
  3. LEUCOVORIN CALCIUM [Suspect]
     Indication: COLORECTAL CANCER
     Dosage: 30 MG, UNK
     Route: 042
     Dates: start: 20080623
  4. FLUOROURACIL [Suspect]
     Indication: COLORECTAL CANCER
     Dosage: 1500 MG/M2, UNK
     Route: 042
     Dates: start: 20080623
  5. IRINOTECAN HYDROCHLORIDE [Suspect]
     Indication: COLORECTAL CANCER
     Dosage: 100 MG/M2, UNK
     Route: 042
     Dates: start: 20080630
  6. OXALIPLATIN [Suspect]
     Indication: COLORECTAL CANCER
     Dosage: 70 MG/M2, UNK
     Route: 042
     Dates: start: 20080623

REACTIONS (1)
  - C-REACTIVE PROTEIN INCREASED [None]
